FAERS Safety Report 4433221-2 (Version None)
Quarter: 2004Q3

REPORT INFORMATION
  Report Type: 
  Country: None (occurrence: None)
  Receive Date: 20040823
  Receipt Date: 20040803
  Transmission Date: 20050211
  Serious: No
  Sender: FDA-Public Use
  Company Number: 2004-DE-03666BY

PATIENT
  Sex: Male

DRUGS (1)
  1. KINZALMONO (TELMISARTAN) (TELMISARTAN) [Suspect]

REACTIONS (2)
  - INTERVERTEBRAL DISC DISPLACEMENT [None]
  - MUSCLE DISORDER [None]
